FAERS Safety Report 25859417 (Version 3)
Quarter: 2025Q4

REPORT INFORMATION
  Report Type: Spontaneous
  Country: US (occurrence: US)
  Receive Date: 20250929
  Receipt Date: 20251215
  Transmission Date: 20260118
  Serious: No
  Sender: BIOVITRUM
  Company Number: US-BIOVITRUM-2025-US-013297

PATIENT
  Age: 69 Year
  Sex: Male

DRUGS (2)
  1. DOPTELET [Suspect]
     Active Substance: AVATROMBOPAG MALEATE
     Indication: Immune thrombocytopenia
     Dosage: UNIT: 1 AND FREQUENCY: ONCE A DAY (1 A DAY)
  2. DOPTELET [Suspect]
     Active Substance: AVATROMBOPAG MALEATE
     Dosage: TWICE A WEEK.
     Route: 048
     Dates: start: 20250307

REACTIONS (2)
  - Fatigue [Unknown]
  - Drug hypersensitivity [Unknown]
